FAERS Safety Report 12291092 (Version 5)
Quarter: 2016Q3

REPORT INFORMATION
  Report Type: Report from Study
  Country: CA (occurrence: CA)
  Receive Date: 20160421
  Receipt Date: 20160713
  Transmission Date: 20161109
  Serious: Yes (Death, Hospitalization)
  Sender: FDA-Public Use
  Company Number: CA-JNJFOC-20160111207

PATIENT
  Sex: Female

DRUGS (2)
  1. IMBRUVICA [Suspect]
     Active Substance: IBRUTINIB
     Indication: CHRONIC LYMPHOCYTIC LEUKAEMIA
     Route: 048
     Dates: start: 20150225, end: 20160613
  2. IMBRUVICA [Suspect]
     Active Substance: IBRUTINIB
     Indication: CHRONIC LYMPHOCYTIC LEUKAEMIA
     Route: 048
     Dates: end: 20160630

REACTIONS (18)
  - Pneumonia [Recovered/Resolved]
  - Pulmonary embolism [Not Recovered/Not Resolved]
  - Myocardial infarction [Recovered/Resolved]
  - Brain neoplasm [Not Recovered/Not Resolved]
  - Headache [Not Recovered/Not Resolved]
  - Epistaxis [Recovered/Resolved]
  - Asthenia [Unknown]
  - Oedema peripheral [Not Recovered/Not Resolved]
  - Deep vein thrombosis [Not Recovered/Not Resolved]
  - Hypokalaemia [Unknown]
  - Chest pain [Not Recovered/Not Resolved]
  - Hypotension [Unknown]
  - Hypernatraemia [Unknown]
  - Sinus congestion [Recovered/Resolved]
  - Death [Fatal]
  - Hyponatraemia [Recovered/Resolved]
  - Dyspnoea [Unknown]
  - Pain in jaw [Not Recovered/Not Resolved]
